FAERS Safety Report 5682102-5 (Version None)
Quarter: 2008Q1

REPORT INFORMATION
  Report Type: 
  Country: None (occurrence: None)
  Receive Date: 20080327
  Receipt Date: 20070411
  Transmission Date: 20080703
  Serious: No
  Sender: FDA-Public Use
  Company Number: US-BAYER-US-2007-013092

PATIENT
  Age: 36 Year
  Sex: Female
  Weight: 64 kg

DRUGS (2)
  1. MIRENA [Suspect]
     Indication: CONTRACEPTION
     Route: 015
     Dates: start: 20070312, end: 20070412
  2. DIOVAN [Concomitant]
     Dosage: UNIT DOSE: 80 MG
     Route: 048

REACTIONS (3)
  - FLUSHING [None]
  - MIGRAINE [None]
  - POOR QUALITY SLEEP [None]
